FAERS Safety Report 21924735 (Version 1)
Quarter: 2023Q1

REPORT INFORMATION
  Report Type: Spontaneous
  Country: US (occurrence: US)
  Receive Date: 20230130
  Receipt Date: 20230130
  Transmission Date: 20230417
  Serious: No
  Sender: FDA-Public Use
  Company Number: US-ALNYLAM PHARMACEUTICALS, INC.-ALN-2023-000283

PATIENT

DRUGS (1)
  1. ONPATTRO [Suspect]
     Active Substance: PATISIRAN SODIUM
     Indication: Product used for unknown indication
     Dosage: UNK
     Route: 065

REACTIONS (11)
  - Fall [Unknown]
  - Somnolence [Unknown]
  - Confusional state [Unknown]
  - Abdominal discomfort [Unknown]
  - Retching [Unknown]
  - Fatigue [Unknown]
  - Joint injury [Unknown]
  - Head injury [Unknown]
  - Gait disturbance [Unknown]
  - Dysstasia [Unknown]
  - Product administration error [Unknown]
